FAERS Safety Report 19585837 (Version 2)
Quarter: 2021Q3

REPORT INFORMATION
  Report Type: Spontaneous
  Country: US (occurrence: US)
  Receive Date: 20210720
  Receipt Date: 20210816
  Transmission Date: 20211014
  Serious: Yes (Other)
  Sender: FDA-Public Use
  Company Number: US-PFIZER INC-2021883480

PATIENT
  Age: 44 Year
  Sex: Female
  Weight: 88.89 kg

DRUGS (23)
  1. TYLENOL EXTRA STRENGTH [Concomitant]
     Active Substance: ACETAMINOPHEN
     Dosage: UNK
  2. VITAMIN D3 [Concomitant]
     Active Substance: CHOLECALCIFEROL
     Dosage: 10 MCG CAPSULE
  3. MELATONIN PLUS [MELATONIN;PYRIDOXINE HYDROCHLORIDE;THEANINE] [Concomitant]
     Dosage: 3 MG CAPSULE
  4. ARMOUR THYROID [Concomitant]
     Active Substance: THYROID, PORCINE
     Dosage: 120 MG TABLET
  5. ZOLADEX [Concomitant]
     Active Substance: GOSERELIN ACETATE
     Dosage: 10.8 MG
  6. ZOMETA [Concomitant]
     Active Substance: ZOLEDRONIC ACID
     Dosage: 4 MG/100ML PGGYBK BTL
  7. CALCIUM + D3 [CALCIUM CARBONATE;COLECALCIFEROL] [Concomitant]
     Dosage: 600MG?12.5 TABLET ER
  8. ONDANSETRON HCL [Concomitant]
     Active Substance: ONDANSETRON HYDROCHLORIDE
     Dosage: UNK
  9. XYZAL [Concomitant]
     Active Substance: LEVOCETIRIZINE DIHYDROCHLORIDE
     Dosage: 5 MG TABLET
  10. VITAMIN B COMPLEX [Concomitant]
     Active Substance: CYANOCOBALAMIN\DEXPANTHENOL\NIACINAMIDE\PYRIDOXINE HYDROCHLORIDE\RIBOFLAVIN 5^-PHOSPHATE SODIUM\THIAMINE HYDROCHLORIDE\VITAMIN B COMPLEX
     Dosage: 0.4 MG TABLET
  11. GABAPENTIN. [Concomitant]
     Active Substance: GABAPENTIN
     Dosage: 100 MG CAPSULE
  12. OMEGA 3 + VITAMIN D [Concomitant]
     Dosage: 150?500MG CAPSULE
  13. FENTANYL TRANSDERMAL SYSTEM [Concomitant]
     Active Substance: FENTANYL
     Dosage: 100 MCG/HR PATCH TD72
  14. IBRANCE [Suspect]
     Active Substance: PALBOCICLIB
     Indication: BREAST CANCER FEMALE
     Dosage: 1 DAILY FOR 21 DAYS
     Route: 048
     Dates: start: 20210528
  15. POTASSIUM 99 [Concomitant]
     Active Substance: POTASSIUM
     Dosage: 99 MG TABLET
  16. CALCITRIOL. [Concomitant]
     Active Substance: CALCITRIOL
     Dosage: 0.25 MCG CAPSULE
  17. MAGNESIUM [Concomitant]
     Active Substance: MAGNESIUM
     Dosage: 100 MG TABLET
  18. IBRANCE [Suspect]
     Active Substance: PALBOCICLIB
     Dosage: 125 MG (DAILY X 21 DAYS, 7 DAYS OFF)
     Route: 048
     Dates: start: 20210801
  19. BIOTIN [Concomitant]
     Active Substance: BIOTIN
     Dosage: 10 MG
  20. ACETIC ACID\HYDROCORTISONE [Concomitant]
     Active Substance: ACETIC ACID\HYDROCORTISONE
     Dosage: UNK
  21. ACETAMINOPHEN;HYDROCODONE [Concomitant]
     Active Substance: ACETAMINOPHEN\HYDROCODONE
  22. PANTOPRAZOLE SODIUM. [Concomitant]
     Active Substance: PANTOPRAZOLE SODIUM
     Dosage: 20 MG TABLET DR
  23. LETROZOLE. [Concomitant]
     Active Substance: LETROZOLE
     Dosage: 2.5 MG TABLET

REACTIONS (11)
  - Anaemia [Unknown]
  - Malaise [Unknown]
  - Blood count abnormal [Unknown]
  - Diarrhoea [Unknown]
  - Vaginal haemorrhage [Unknown]
  - Food aversion [Unknown]
  - Abdominal discomfort [Unknown]
  - Sensitive skin [Unknown]
  - Nausea [Unknown]
  - Pruritus [Unknown]
  - Parosmia [Unknown]
